FAERS Safety Report 11255790 (Version 1)
Quarter: 2015Q3

REPORT INFORMATION
  Report Type: Spontaneous
  Country: US (occurrence: US)
  Receive Date: 20150709
  Receipt Date: 20150709
  Transmission Date: 20151125
  Serious: No
  Sender: FDA-Public Use
  Company Number: US-TEVA-576544USA

PATIENT
  Sex: Female

DRUGS (2)
  1. IUD (INTRAUTERINE CONTRACEPTIVE DEVICE) [Concomitant]
     Indication: CONTRACEPTION
  2. COPAXONE [Suspect]
     Active Substance: GLATIRAMER ACETATE
     Indication: MULTIPLE SCLEROSIS
     Dosage: FORM STRENGTH UNKNOWN
     Route: 065

REACTIONS (2)
  - Pyrexia [Recovered/Resolved]
  - Tremor [Unknown]
